FAERS Safety Report 8390027-X (Version None)
Quarter: 2012Q2

REPORT INFORMATION
  Report Type: 
  Country: None (occurrence: None)
  Receive Date: 20120529
  Receipt Date: 20120514
  Transmission Date: 20120825
  Serious: Yes (Hospitalization, Other)
  Sender: FDA-Public Use
  Company Number: JP-JNJFOC-20120315170

PATIENT
  Age: 8 Decade
  Sex: Female

DRUGS (4)
  1. FENTANYL-100 [Suspect]
     Indication: PAIN
     Route: 062
     Dates: start: 20120201
  2. FENTANYL-100 [Suspect]
     Dosage: FOR ONCE ONLY
     Route: 062
  3. FENTANYL-100 [Suspect]
     Indication: BACK PAIN
     Dosage: FOR ONCE ONLY
     Route: 062
  4. FENTANYL-100 [Suspect]
     Route: 062
     Dates: start: 20120201

REACTIONS (7)
  - DYSARTHRIA [None]
  - BREAST CANCER [None]
  - CEREBRAL INFARCTION [None]
  - DIZZINESS [None]
  - TREATMENT NONCOMPLIANCE [None]
  - SKIN ODOUR ABNORMAL [None]
  - ACCIDENTAL EXPOSURE [None]
